FAERS Safety Report 7998153-1 (Version None)
Quarter: 2011Q4

REPORT INFORMATION
  Report Type: 
  Country: None (occurrence: None)
  Receive Date: 20111221
  Receipt Date: 20110311
  Transmission Date: 20120403
  Serious: No
  Sender: FDA-Public Use
  Company Number: US-GLAXOSMITHKLINE-A0917812A

PATIENT
  Age: 66 Year
  Sex: Female

DRUGS (11)
  1. CORZIDE [Concomitant]
  2. LOVAZA [Suspect]
     Indication: MYOCARDIAL INFARCTION
     Dosage: 6CAP PER DAY
     Route: 048
     Dates: start: 20110301
  3. PLAVIX [Concomitant]
  4. ASPIRIN [Concomitant]
  5. BUMEX [Concomitant]
  6. PERSANTINE [Concomitant]
  7. JANUMET [Concomitant]
  8. NEXIUM [Concomitant]
  9. POTASSIUM [Concomitant]
  10. ZOLOFT [Concomitant]
  11. CRESTOR [Concomitant]

REACTIONS (1)
  - OVERDOSE [None]
